FAERS Safety Report 10067390 (Version 2)
Quarter: 2014Q2

REPORT INFORMATION
  Report Type: Spontaneous
  Country: US (occurrence: US)
  Receive Date: 20140409
  Receipt Date: 20140423
  Transmission Date: 20141212
  Serious: No
  Sender: FDA-Public Use
  Company Number: US-B.I. PHARMACEUTICALS,INC./RIDGEFIELD-2014-BI-13643BP

PATIENT
  Age: 73 Year
  Sex: Male
  Weight: 70 kg

DRUGS (6)
  1. SPIRIVA [Suspect]
     Indication: CHRONIC OBSTRUCTIVE PULMONARY DISEASE
     Dosage: 18 MCG
     Route: 055
     Dates: start: 2010
  2. METFORMIN [Concomitant]
     Indication: DIABETES MELLITUS
     Dosage: 1000 MG
     Route: 048
  3. PROTONIX [Concomitant]
     Indication: HIATUS HERNIA
     Dosage: 20 MG
     Route: 048
  4. VALSARTAN [Concomitant]
     Indication: RENAL DISORDER
     Dosage: 1 ANZ
     Route: 048
  5. VITAMIN D [Concomitant]
     Dosage: 2 ANZ
     Route: 048
  6. TAMSULOSIN [Concomitant]
     Indication: URINARY TRACT DISORDER
     Dosage: 2 ANZ
     Route: 048

REACTIONS (3)
  - Halo vision [Not Recovered/Not Resolved]
  - Product quality issue [Recovered/Resolved]
  - Product quality issue [Recovered/Resolved]
